FAERS Safety Report 7026802-3 (Version None)
Quarter: 2010Q4

REPORT INFORMATION
  Report Type: 
  Country: None (occurrence: None)
  Receive Date: 20101004
  Receipt Date: 20100930
  Transmission Date: 20110411
  Serious: Yes (Hospitalization)
  Sender: FDA-Public Use
  Company Number: JP-ROCHE-730357

PATIENT
  Sex: Female
  Weight: 45 kg

DRUGS (2)
  1. XELODA [Suspect]
     Indication: LARGE INTESTINE CARCINOMA
     Route: 048
     Dates: start: 20100101
  2. OTHER MEDICATION [Suspect]
     Indication: LARGE INTESTINE CARCINOMA
     Dosage: DRUG: OTHER ANTITUMOR AGENTS. DOSE IS UNCERTAIN.
     Route: 041

REACTIONS (2)
  - DIZZINESS [None]
  - SOMNOLENCE [None]
